FAERS Safety Report 4513335-9 (Version None)
Quarter: 2004Q4

REPORT INFORMATION
  Report Type: 
  Country: None (occurrence: None)
  Receive Date: 20041130
  Receipt Date: 20040811
  Transmission Date: 20050328
  Serious: No
  Sender: FDA-Public Use
  Company Number: US-BRISTOL-MYERS SQUIBB COMPANY-12669099

PATIENT
  Age: 8 Decade
  Sex: Female
  Weight: 77 kg

DRUGS (7)
  1. ERBITUX [Suspect]
     Indication: COLON CANCER METASTATIC
     Dosage: INTERRUPTED FOR A FEW WEEKS.
     Route: 042
     Dates: start: 20040801, end: 20040801
  2. BENADRYL [Concomitant]
     Indication: PREMEDICATION
     Route: 042
     Dates: start: 20040801, end: 20040801
  3. ALLOPURINOL [Concomitant]
  4. ATIVAN [Concomitant]
  5. GLIPIZIDE [Concomitant]
  6. PAXIL [Concomitant]
  7. REGLAN [Concomitant]

REACTIONS (1)
  - BLOOD CREATININE INCREASED [None]
